FAERS Safety Report 4429285-2 (Version None)
Quarter: 2004Q3

REPORT INFORMATION
  Report Type: 
  Country: None (occurrence: None)
  Receive Date: 20040818
  Receipt Date: 20040818
  Transmission Date: 20050211
  Serious: Yes (Hospitalization)
  Sender: FDA-Public Use
  Company Number: None

PATIENT
  Age: 65 Year
  Sex: Male
  Weight: 100.6 kg

DRUGS (1)
  1. TRICOR [Suspect]
     Dosage: 160MG  DAILY  ORAL
     Route: 048
     Dates: start: 20040406, end: 20040416

REACTIONS (3)
  - MYOPATHY [None]
  - MYOSITIS [None]
  - RENAL FAILURE [None]
